FAERS Safety Report 15435169 (Version 1)
Quarter: 2018Q3

REPORT INFORMATION
  Report Type: Report from Study
  Country: IT (occurrence: IT)
  Receive Date: 20180927
  Receipt Date: 20180927
  Transmission Date: 20181010
  Serious: Yes (Hospitalization)
  Sender: FDA-Public Use
  Company Number: IT-SA-2018SA258798

PATIENT
  Age: 18 Year
  Sex: Female

DRUGS (3)
  1. ZOLPIDEM TARTRATE. [Suspect]
     Active Substance: ZOLPIDEM TARTRATE
     Indication: DRUG ABUSE
     Dosage: 150 MG, TOTAL
     Route: 048
     Dates: start: 20180515, end: 20180515
  2. DELORAZEPAM [Suspect]
     Active Substance: DELORAZEPAM
     Indication: DRUG ABUSE
     Dosage: 10 ML, TOTAL
     Route: 048
     Dates: start: 20180515, end: 20180515
  3. DULOXETINE HYDROCHLORIDE. [Concomitant]
     Active Substance: DULOXETINE HYDROCHLORIDE
     Indication: CONVERSION DISORDER
     Dosage: 30 MG, UNK
     Route: 048
     Dates: start: 20180320

REACTIONS (5)
  - Depressed mood [Recovering/Resolving]
  - Crying [Recovering/Resolving]
  - Overdose [Unknown]
  - Bradyphrenia [Recovering/Resolving]
  - Drug abuse [Unknown]

NARRATIVE: CASE EVENT DATE: 20180515
